FAERS Safety Report 24976905 (Version 1)
Quarter: 2025Q1

REPORT INFORMATION
  Report Type: Spontaneous
  Country: CN (occurrence: CN)
  Receive Date: 20250217
  Receipt Date: 20250217
  Transmission Date: 20250409
  Serious: Yes (Hospitalization, Other)
  Sender: PFIZER
  Company Number: CN-PFIZER INC-PV202500016769

PATIENT
  Age: 67 Year
  Sex: Female
  Weight: 66 kg

DRUGS (2)
  1. CYTARABINE [Suspect]
     Active Substance: CYTARABINE
     Indication: Chemotherapy
     Dosage: 3 G, 2X/DAY
     Route: 041
     Dates: start: 20250114, end: 20250116
  2. SODIUM CHLORIDE [Concomitant]
     Active Substance: SODIUM CHLORIDE
     Indication: Vehicle solution use
     Dosage: 500 ML, 2X/DAY
     Route: 041
     Dates: start: 20250114, end: 20250116

REACTIONS (3)
  - Myelosuppression [Unknown]
  - Febrile infection [Recovered/Resolved]
  - Oral blood blister [Recovered/Resolved]

NARRATIVE: CASE EVENT DATE: 20250122
